FAERS Safety Report 7399915-4 (Version None)
Quarter: 2011Q2

REPORT INFORMATION
  Report Type: 
  Country: None (occurrence: None)
  Receive Date: 20110407
  Receipt Date: 20110324
  Transmission Date: 20111010
  Serious: Yes (Congenital Anomaly)
  Sender: FDA-Public Use
  Company Number: US-JNJFOC-20110400040

PATIENT

DRUGS (3)
  1. DOXORUBICIN HYDROCHLORIDE [Suspect]
     Indication: DRUG EXPOSURE DURING PREGNANCY
     Route: 064
  2. CYCLOPHOSPHAMIDE [Suspect]
     Indication: DRUG EXPOSURE DURING PREGNANCY
     Dosage: TOTAL 4 TO 6 CYCLES GIVEN, ON DAY 1
     Route: 064
  3. FLUOROURACIL [Suspect]
     Indication: DRUG EXPOSURE DURING PREGNANCY
     Route: 064

REACTIONS (1)
  - TALIPES [None]
